FAERS Safety Report 7895807-2 (Version None)
Quarter: 2011Q4

REPORT INFORMATION
  Report Type: 
  Country: None (occurrence: None)
  Receive Date: 20111028
  Receipt Date: 20110606
  Transmission Date: 20120403
  Serious: Yes (Other)
  Sender: FDA-Public Use
  Company Number: DSA_46902_2011

PATIENT
  Sex: Male

DRUGS (2)
  1. NICOTINE [Suspect]
     Indication: SMOKING CESSATION THERAPY
     Dosage: (DF TRANSDERMAL)
     Route: 062
  2. WELLBUTRIN [Suspect]
     Indication: SMOKING CESSATION THERAPY
     Dosage: (DF ORAL)
     Route: 048

REACTIONS (2)
  - DRUG INEFFECTIVE FOR UNAPPROVED INDICATION [None]
  - MYOCARDIAL INFARCTION [None]
